FAERS Safety Report 18300456 (Version 1)
Quarter: 2020Q3

REPORT INFORMATION
  Report Type: Spontaneous
  Country: CA (occurrence: CA)
  Receive Date: 20200923
  Receipt Date: 20200923
  Transmission Date: 20201103
  Serious: Yes (Hospitalization, Other)
  Sender: FDA-Public Use
  Company Number: CA-ALVOGEN-2020-ALVOGEN-114372

PATIENT
  Age: 60 Year
  Sex: Female

DRUGS (6)
  1. SANDOSTATIN [Suspect]
     Active Substance: OCTREOTIDE ACETATE
     Indication: CARCINOID TUMOUR
     Route: 058
  2. SANDOSTATIN LAR DEPOT [Suspect]
     Active Substance: OCTREOTIDE ACETATE
     Indication: CARCINOID TUMOUR
     Route: 030
  3. NICODERM CQ [Concomitant]
     Active Substance: NICOTINE
     Indication: PRODUCT USED FOR UNKNOWN INDICATION
     Route: 065
  4. MICARDIS [Concomitant]
     Active Substance: TELMISARTAN
     Indication: PRODUCT USED FOR UNKNOWN INDICATION
     Dosage: 80.0MG UNKNOWN
     Route: 065
  5. ATENOLOL. [Suspect]
     Active Substance: ATENOLOL
     Indication: PRODUCT USED FOR UNKNOWN INDICATION
     Dosage: 50.0MG UNKNOWN
     Route: 048
  6. OCTREOTIDE ACETATE. [Suspect]
     Active Substance: OCTREOTIDE ACETATE
     Indication: CARCINOID TUMOUR
     Route: 030

REACTIONS (10)
  - Malignant neoplasm progression [Unknown]
  - Syncope [Unknown]
  - Blood pressure decreased [Unknown]
  - Headache [Unknown]
  - Blood pressure increased [Unknown]
  - Nausea [Unknown]
  - Cardiac disorder [Unknown]
  - Facial bones fracture [Unknown]
  - Fall [Unknown]
  - Blood pressure systolic increased [Unknown]
